FAERS Safety Report 6062332-3 (Version None)
Quarter: 2009Q1

REPORT INFORMATION
  Report Type: 
  Country: None (occurrence: None)
  Receive Date: 20090203
  Receipt Date: 20090127
  Transmission Date: 20090719
  Serious: Yes (Other)
  Sender: FDA-Public Use
  Company Number: PHHY2008JP19977

PATIENT
  Sex: Female

DRUGS (11)
  1. TEGRETOL [Suspect]
     Indication: EPILEPSY
     Dosage: 800 MG
     Route: 048
     Dates: start: 20060805
  2. TEGRETOL [Suspect]
     Dosage: 600 MG, QD
     Route: 048
     Dates: start: 20080812
  3. ALEVIATIN [Concomitant]
     Indication: EPILEPSY
     Dosage: 200 MG, UNK
     Route: 048
     Dates: start: 20060805
  4. ALEVIATIN [Concomitant]
     Dosage: 250 MG. UNK
     Route: 048
  5. ALEVIATIN [Concomitant]
     Dosage: 200 MG, UNK
     Route: 048
     Dates: end: 20080516
  6. DEPAKENE [Concomitant]
     Indication: EPILEPSY
     Dosage: 400 MG
     Route: 048
     Dates: start: 20060812
  7. DEPAKENE [Concomitant]
     Dosage: 600 MG
     Route: 048
  8. VALERIN [Concomitant]
     Indication: EPILEPSY
     Dosage: 400MG, UNK
     Route: 048
     Dates: start: 20061010
  9. VALERIN [Concomitant]
     Dosage: 800MG, UNK
     Route: 048
  10. VALERIN [Concomitant]
     Dosage: 1200 MG, UNK
     Route: 048
  11. VALERIN [Concomitant]
     Dosage: 600MG, UNK
     Route: 048
     Dates: end: 20080830

REACTIONS (3)
  - IDIOPATHIC THROMBOCYTOPENIC PURPURA [None]
  - PLATELET COUNT DECREASED [None]
  - WHITE BLOOD CELL COUNT DECREASED [None]
